FAERS Safety Report 22304758 (Version 1)
Quarter: 2023Q2

REPORT INFORMATION
  Report Type: Spontaneous
  Country: US (occurrence: None)
  Receive Date: 20230509
  Receipt Date: 20230509
  Transmission Date: 20230721
  Serious: Yes (Other)
  Sender: FDA-Public Use
  Company Number: None

PATIENT
  Age: 53 Year
  Sex: Female

DRUGS (27)
  1. OPSUMIT [Suspect]
     Active Substance: MACITENTAN
     Indication: Pulmonary hypertension
     Dosage: FREQUENCY : DAILY;?
     Route: 048
     Dates: start: 20190910
  2. SILDENAFIL [Concomitant]
     Active Substance: SILDENAFIL
  3. BUPROPION [Concomitant]
     Active Substance: BUPROPION
  4. SERTRALINE [Concomitant]
     Active Substance: SERTRALINE HYDROCHLORIDE
  5. PILOCARPINE [Concomitant]
     Active Substance: PILOCARPINE
  6. ATORVASTATIN [Concomitant]
     Active Substance: ATORVASTATIN
  7. METOCLOPRAMIDE [Concomitant]
     Active Substance: METOCLOPRAMIDE
  8. NORCO [Concomitant]
     Active Substance: ACETAMINOPHEN\HYDROCODONE BITARTRATE
  9. ASTELIN [Concomitant]
     Active Substance: AZELASTINE HYDROCHLORIDE
  10. OMEPRAZOLE [Concomitant]
     Active Substance: OMEPRAZOLE
  11. PROBIOTICS NOS [Concomitant]
     Active Substance: PROBIOTICS NOS
  12. ACTEMRA ACTPEN [Concomitant]
     Active Substance: TOCILIZUMAB
  13. DESVENLAFAXINE [Concomitant]
     Active Substance: DESVENLAFAXINE
  14. STIOLTO RESPIMAT [Concomitant]
     Active Substance: OLODATEROL HYDROCHLORIDE\TIOTROPIUM BROMIDE MONOHYDRATE
  15. ALBUTEROL SULFATE [Concomitant]
     Active Substance: ALBUTEROL SULFATE
  16. FLONASE [Concomitant]
     Active Substance: FLUTICASONE PROPIONATE
  17. URSODIOL [Concomitant]
     Active Substance: URSODIOL
  18. PREDNISONE [Concomitant]
     Active Substance: PREDNISONE
  19. ALBUTEROL [Concomitant]
     Active Substance: ALBUTEROL
  20. ESTRADIOL [Concomitant]
     Active Substance: ESTRADIOL
  21. HYDROXYCHLOROQUINE [Concomitant]
     Active Substance: HYDROXYCHLOROQUINE
  22. GABAPENTIN [Concomitant]
     Active Substance: GABAPENTIN
  23. RECLAST [Concomitant]
     Active Substance: ZOLEDRONIC ACID
  24. Vit B-12 [Concomitant]
  25. CALCIUM CARBONATE [Concomitant]
     Active Substance: CALCIUM CARBONATE
  26. FLAXSEED [Concomitant]
     Active Substance: FLAX SEED
  27. VITAMIN D3 [Concomitant]
     Active Substance: CHOLECALCIFEROL

REACTIONS (5)
  - Dyspnoea [None]
  - Abdominal pain [None]
  - Abdominal distension [None]
  - Hepatic cirrhosis [None]
  - Ascites [None]

NARRATIVE: CASE EVENT DATE: 20230426
